FAERS Safety Report 25309193 (Version 2)
Quarter: 2025Q3

REPORT INFORMATION
  Report Type: Report from Study
  Country: US (occurrence: US)
  Receive Date: 20250513
  Receipt Date: 20250922
  Transmission Date: 20251021
  Serious: No
  Sender: SUNOVION
  Company Number: US-SUMITOMO PHARMA SWITZERLAND GMBH-2025SPA005204

PATIENT
  Age: 74 Year
  Sex: Male

DRUGS (16)
  1. ORGOVYX [Suspect]
     Active Substance: RELUGOLIX
     Indication: Prostate cancer
     Dosage: 360 MG, SINGLE
     Route: 048
     Dates: start: 20250220, end: 20250220
  2. ORGOVYX [Suspect]
     Active Substance: RELUGOLIX
     Dosage: 120 MG, QD
     Route: 048
     Dates: start: 20250221
  3. ATORVASTATIN [Concomitant]
     Active Substance: ATORVASTATIN
  4. B6 natural [Concomitant]
     Route: 048
  5. Baby Vitamin d3 [Concomitant]
  6. CVS Lansoprazole [Concomitant]
  7. CVS Vitamin b12 [Concomitant]
  8. DULOXETINE [Concomitant]
     Active Substance: DULOXETINE
  9. FOLIC ACID [Concomitant]
     Active Substance: FOLIC ACID
  10. GLIPIZIDE [Concomitant]
     Active Substance: GLIPIZIDE
  11. JARDIANCE [Concomitant]
     Active Substance: EMPAGLIFLOZIN
  12. LANTUS SOLOSTAR [Concomitant]
     Active Substance: INSULIN GLARGINE
     Route: 058
  13. METFORMIN [Concomitant]
     Active Substance: METFORMIN HYDROCHLORIDE
  14. OZEMPIC [Concomitant]
     Active Substance: SEMAGLUTIDE
  15. TYLENOL [Concomitant]
     Active Substance: ACETAMINOPHEN
  16. CALCIUM [Concomitant]
     Active Substance: CALCIUM

REACTIONS (5)
  - Muscular weakness [Unknown]
  - Blood glucose increased [Recovering/Resolving]
  - Constipation [Unknown]
  - Hot flush [Unknown]
  - Diarrhoea [Unknown]
